FAERS Safety Report 6201637-X (Version None)
Quarter: 2009Q2

REPORT INFORMATION
  Report Type: 
  Country: None (occurrence: None)
  Receive Date: 20090518
  Receipt Date: 20090408
  Transmission Date: 20091009
  Serious: No
  Sender: FDA-Public Use
  Company Number: WAES 0904USA01195

PATIENT
  Age: 62 Year
  Sex: Female

DRUGS (5)
  1. JANUVIA [Suspect]
     Indication: DIABETES MELLITUS
     Dosage: 50 MG/DAILY/PO;DAILY/PO
     Route: 048
     Dates: start: 20080101
  2. JANUVIA [Suspect]
     Indication: DIABETES MELLITUS
     Dosage: 50 MG/DAILY/PO;DAILY/PO
     Route: 048
     Dates: start: 20090404
  3. INDERAL [Concomitant]
  4. GLYBURIDE [Concomitant]
  5. . [Concomitant]

REACTIONS (2)
  - DRUG INEFFECTIVE [None]
  - WRONG TECHNIQUE IN DRUG USAGE PROCESS [None]
